FAERS Safety Report 26116223 (Version 1)
Quarter: 2025Q4

REPORT INFORMATION
  Report Type: Spontaneous
  Country: GB (occurrence: GB)
  Receive Date: 20251203
  Receipt Date: 20251203
  Transmission Date: 20260118
  Serious: Yes (Other)
  Sender: NOVARTIS
  Company Number: GB-002147023-NVSC2025GB164821

PATIENT

DRUGS (1)
  1. PLUVICTO [Suspect]
     Active Substance: LUTETIUM LU-177 VIPIVOTIDE TETRAXETAN
     Indication: Prostate cancer
     Dosage: UNK (6 CYCLES COMPLETED)
     Route: 065
     Dates: start: 202309

REACTIONS (3)
  - Necrosis [Unknown]
  - Prostatic pain [Unknown]
  - Radiation proctitis [Unknown]
